FAERS Safety Report 5002400-8 (Version None)
Quarter: 2006Q2

REPORT INFORMATION
  Report Type: 
  Country: None (occurrence: None)
  Receive Date: 20060512
  Receipt Date: 20060428
  Transmission Date: 20061013
  Serious: Yes (Hospitalization, Other)
  Sender: FDA-Public Use
  Company Number: US200605000304

PATIENT
  Sex: Female

DRUGS (10)
  1. CYMBALTA [Suspect]
     Indication: DEPRESSION
     Dosage: 140 MG
     Dates: start: 20040101
  2. PINDOLOL NM (PINDOLOL) [Concomitant]
  3. PREMARIN [Concomitant]
  4. (ESTROGENS CONJUGATED) [Concomitant]
  5. TOPAMAX /AUS/(TOPIRAMATE) [Concomitant]
  6. BENTYL [Concomitant]
  7. WELCHOL [Concomitant]
  8. PHENERGAN (PROMETHAZINE HYDROCHLORIDE) [Concomitant]
  9. NEXIUM /UNK/ (ESOMEPRAZOLE) [Concomitant]
  10. VALIUM /NET/ (DIAZEPAM) [Concomitant]

REACTIONS (5)
  - CRYING [None]
  - FATIGUE [None]
  - FEAR [None]
  - PRESCRIBED OVERDOSE [None]
  - SALIVARY GLAND CANCER [None]
